FAERS Safety Report 9742275 (Version 2)
Quarter: 2014Q1

REPORT INFORMATION
  Report Type: Spontaneous
  Country: US (occurrence: US)
  Receive Date: 20131210
  Receipt Date: 20140226
  Transmission Date: 20141002
  Serious: No
  Sender: FDA-Public Use
  Company Number: US-BAYER-2013-150546

PATIENT
  Age: 30 Year
  Sex: Male

DRUGS (3)
  1. MAGNEVIST [Suspect]
     Indication: NUCLEAR MAGNETIC RESONANCE IMAGING SPINAL
     Dosage: 20 ML, ONCE
     Route: 042
     Dates: start: 20131206, end: 20131206
  2. MAGNEVIST [Suspect]
     Indication: NUCLEAR MAGNETIC RESONANCE IMAGING SPINAL
     Dosage: 5 ML, ONCE
     Route: 042
     Dates: start: 20131206, end: 20131206
  3. LORAZEPAM [Concomitant]
     Indication: PREMEDICATION
     Dosage: UNK
     Dates: start: 20131206

REACTIONS (4)
  - Salivary hypersecretion [Recovered/Resolved]
  - Nausea [Recovered/Resolved]
  - Dysgeusia [Recovered/Resolved]
  - Abdominal pain upper [Recovered/Resolved]
